FAERS Safety Report 6816134-8 (Version None)
Quarter: 2010Q3

REPORT INFORMATION
  Report Type: 
  Country: None (occurrence: None)
  Receive Date: 20100702
  Receipt Date: 20100702
  Transmission Date: 20110219
  Serious: Yes (Hospitalization)
  Sender: FDA-Public Use
  Company Number: None

PATIENT
  Sex: Male
  Weight: 90.7194 kg

DRUGS (1)
  1. OMNIPAQUE 350 [Suspect]
     Indication: CORONARY ARTERY DISEASE
     Dosage: 200 1 IV
     Route: 042
     Dates: start: 20100626, end: 20100626

REACTIONS (4)
  - BACK PAIN [None]
  - CHILLS [None]
  - NECK PAIN [None]
  - PYREXIA [None]
